FAERS Safety Report 14132607 (Version 6)
Quarter: 2018Q2

REPORT INFORMATION
  Report Type: Report from Study
  Country: US (occurrence: US)
  Receive Date: 20171026
  Receipt Date: 20180423
  Transmission Date: 20180711
  Serious: No
  Sender: FDA-Public Use
  Company Number: US-AMGEN-USASL2017125532

PATIENT
  Age: 59 Year
  Sex: Male

DRUGS (3)
  1. REPATHA [Suspect]
     Active Substance: EVOLOCUMAB
     Indication: LOW DENSITY LIPOPROTEIN INCREASED
  2. REPATHA [Suspect]
     Active Substance: EVOLOCUMAB
     Indication: BLOOD CHOLESTEROL INCREASED
     Dosage: 140 MG, Q2WK
     Route: 065
     Dates: start: 201706
  3. REPATHA [Suspect]
     Active Substance: EVOLOCUMAB
     Indication: HYPERCHOLESTEROLAEMIA

REACTIONS (13)
  - Muscle twitching [Not Recovered/Not Resolved]
  - Gait disturbance [Unknown]
  - Musculoskeletal pain [Not Recovered/Not Resolved]
  - Abdominal pain upper [Recovered/Resolved]
  - Pain in extremity [Not Recovered/Not Resolved]
  - Dyspnoea [Recovered/Resolved]
  - Arthralgia [Recovered/Resolved]
  - Nausea [Unknown]
  - Neck pain [Unknown]
  - Back pain [Recovered/Resolved]
  - Osteoarthritis [Not Recovered/Not Resolved]
  - Hyperventilation [Not Recovered/Not Resolved]
  - Muscle spasms [Not Recovered/Not Resolved]

NARRATIVE: CASE EVENT DATE: 201708
